FAERS Safety Report 18153297 (Version 2)
Quarter: 2020Q3

REPORT INFORMATION
  Report Type: Spontaneous
  Country: US (occurrence: US)
  Receive Date: 20200815
  Receipt Date: 20200915
  Transmission Date: 20201103
  Serious: No
  Sender: FDA-Public Use
  Company Number: US-009507513-2008USA004855

PATIENT
  Age: 85 Year
  Sex: Female

DRUGS (1)
  1. DULERA [Suspect]
     Active Substance: FORMOTEROL FUMARATE DIHYDRATE\MOMETASONE FUROATE
     Indication: DYSPNOEA
     Dosage: 200 MG TWO INHALATIONS BID
     Route: 048
     Dates: start: 20200720

REACTIONS (5)
  - Device malfunction [Unknown]
  - Product use complaint [Unknown]
  - Product use in unapproved indication [Unknown]
  - Poor quality device used [Unknown]
  - Product dose omission issue [Unknown]

NARRATIVE: CASE EVENT DATE: 2020
